FAERS Safety Report 9133406 (Version 1)
Quarter: 2013Q1

REPORT INFORMATION
  Report Type: Report from Study
  Country: US (occurrence: US)
  Receive Date: 20130129
  Receipt Date: 20130129
  Transmission Date: 20140127
  Serious: No
  Sender: FDA-Public Use
  Company Number: US-ABBOTT-12P-163-0929069-00

PATIENT
  Age: 72 Year
  Sex: Male

DRUGS (11)
  1. HUMIRA 40 MG/ 0.8 ML PRE-FILLED SYRINGE [Suspect]
     Indication: RHEUMATOID ARTHRITIS
     Dates: start: 2010, end: 20120405
  2. ACTOS [Concomitant]
     Indication: DIABETES MELLITUS
     Dosage: 45MG DAILY
  3. NIFEDIPINE [Concomitant]
     Indication: HYPERTENSION
     Dosage: 30MG DAILY
  4. BABY ASA [Concomitant]
     Indication: PRODUCT USED FOR UNKNOWN INDICATION
     Dosage: 81MG DAILY
  5. GEMFIBROZIL [Concomitant]
     Indication: BLOOD CHOLESTEROL INCREASED
  6. MULTIVITAMIN [Concomitant]
     Indication: PRODUCT USED FOR UNKNOWN INDICATION
     Dosage: DAILY
  7. OMEGA 3 [Concomitant]
     Indication: PRODUCT USED FOR UNKNOWN INDICATION
     Dosage: DAILY
  8. GLUCOSAMINE [Concomitant]
     Indication: PRODUCT USED FOR UNKNOWN INDICATION
     Dosage: 1500MG DAILY
  9. LOSARTAN [Concomitant]
     Indication: HYPERTENSION
  10. SOMA [Concomitant]
     Indication: PAIN
  11. NITROGLYCERINE [Concomitant]
     Indication: CHEST PAIN

REACTIONS (3)
  - Pruritus [Unknown]
  - Herpes zoster [Recovering/Resolving]
  - Pain [Recovering/Resolving]
